FAERS Safety Report 17733896 (Version 1)
Quarter: 2020Q2

REPORT INFORMATION
  Report Type: Spontaneous
  Country: US (occurrence: US)
  Receive Date: 20200430
  Receipt Date: 20200430
  Transmission Date: 20200714
  Serious: No
  Sender: FDA-Public Use
  Company Number: None

PATIENT

DRUGS (1)
  1. TOBRAMYCIN 80MG/2ML INJ [Suspect]
     Active Substance: TOBRAMYCIN
     Dosage: OTHER  ?
     Dates: start: 202004

REACTIONS (1)
  - Documented hypersensitivity to administered product [None]

NARRATIVE: CASE EVENT DATE: 20200429
